FAERS Safety Report 21626856 (Version 1)
Quarter: 2022Q4

REPORT INFORMATION
  Report Type: Spontaneous
  Country: US (occurrence: None)
  Receive Date: 20221121
  Receipt Date: 20221121
  Transmission Date: 20230112
  Serious: No
  Sender: FDA-Public Use
  Company Number: None

PATIENT
  Age: 52 Year
  Sex: Female
  Weight: 78.47 kg

DRUGS (17)
  1. SPRYCEL [Suspect]
     Active Substance: DASATINIB
     Indication: Chronic myeloid leukaemia
     Dosage: FREQUENCY : DAILY;?
     Route: 048
  2. ADDERALL [Concomitant]
  3. ASPIRIN [Concomitant]
  4. CETRIZINE [Concomitant]
  5. COLACE [Concomitant]
  6. LORAZEPAM [Concomitant]
  7. MINERO OIL-HYDROPHIL [Concomitant]
  8. NEOMYCDIN-POLYMYXIN-DEX [Concomitant]
  9. OFLOXACIN [Concomitant]
  10. PREDNISOLONE [Concomitant]
  11. PROCHLORPERAZINE [Concomitant]
  12. TIMOLOL [Concomitant]
     Active Substance: TIMOLOL
  13. TRIAMCINOLONE [Concomitant]
     Active Substance: TRIAMCINOLONE
  14. TYLENOL [Concomitant]
     Active Substance: ACETAMINOPHEN
  15. VALACYCLOVIR [Concomitant]
     Active Substance: VALACYCLOVIR HYDROCHLORIDE
  16. VANICREAM [Concomitant]
  17. VOLTAREN [Concomitant]
     Active Substance: DICLOFENAC SODIUM

REACTIONS (1)
  - Herpes zoster [None]
